FAERS Safety Report 10196467 (Version 1)
Quarter: 2014Q2

REPORT INFORMATION
  Report Type: Spontaneous
  Country: CH (occurrence: CH)
  Receive Date: 20140527
  Receipt Date: 20140527
  Transmission Date: 20141212
  Serious: Yes (Hospitalization, Other)
  Sender: FDA-Public Use
  Company Number: CH-009507513-1405CHE011842

PATIENT
  Age: 66 Year
  Sex: Female

DRUGS (3)
  1. REMERON [Suspect]
     Dosage: 10 TABLETS (300 MG) AT ONCE
     Route: 048
     Dates: start: 20140304, end: 20140304
  2. CONCOR [Suspect]
     Dosage: 20 TABLETS (100 MG) AT ONCE
     Route: 048
     Dates: start: 20140304, end: 20140304
  3. LORAZEPAM [Suspect]
     Dosage: 20 TABLETS  (20 MG) AT ONCE
     Route: 048
     Dates: start: 20140304, end: 20140304

REACTIONS (3)
  - Sopor [Recovered/Resolved]
  - Toxicity to various agents [Unknown]
  - Suicide attempt [Recovered/Resolved]
